FAERS Safety Report 17426615 (Version 1)
Quarter: 2020Q1

REPORT INFORMATION
  Report Type: Report from Study
  Country: BR (occurrence: BR)
  Receive Date: 20200217
  Receipt Date: 20200217
  Transmission Date: 20200409
  Serious: Yes (Life-Threatening, Hospitalization, Other)
  Sender: FDA-Public Use
  Company Number: NVSC2020BR042656

PATIENT
  Age: 76 Year
  Sex: Male

DRUGS (3)
  1. ENTRESTO [Suspect]
     Active Substance: SACUBITRIL\VALSARTAN
     Dosage: UNK (49/21 MG)
     Route: 065
     Dates: start: 201908, end: 201911
  2. ENTRESTO [Suspect]
     Active Substance: SACUBITRIL\VALSARTAN
     Dosage: UNK (97/103 MG)
     Route: 065
     Dates: start: 201911
  3. ENTRESTO [Suspect]
     Active Substance: SACUBITRIL\VALSARTAN
     Indication: CARDIAC FAILURE
     Dosage: UNK (24/24 MG)
     Route: 065
     Dates: start: 2016

REACTIONS (11)
  - Dementia Alzheimer^s type [Not Recovered/Not Resolved]
  - Malaise [Unknown]
  - Blood calcium increased [Unknown]
  - Expired product administered [Unknown]
  - Dyspnoea [Unknown]
  - Syncope [Unknown]
  - Fatigue [Recovered/Resolved]
  - Pneumonia [Unknown]
  - Cardiac failure [Unknown]
  - Near death experience [Recovered/Resolved]
  - Fatigue [Unknown]

NARRATIVE: CASE EVENT DATE: 20190317
